FAERS Safety Report 24812226 (Version 1)
Quarter: 2025Q1

REPORT INFORMATION
  Report Type: Spontaneous
  Country: US (occurrence: US)
  Receive Date: 20250106
  Receipt Date: 20250106
  Transmission Date: 20250408
  Serious: No
  Sender: BRAINTREE
  Company Number: US-BRAINTREE LABORATORIES, INC.-2023BTE00806

PATIENT
  Age: 73 Year
  Sex: Male
  Weight: 79.365 kg

DRUGS (6)
  1. SUTAB [Suspect]
     Active Substance: MAGNESIUM SULFATE\POTASSIUM CHLORIDE\SODIUM SULFATE
     Indication: Colonoscopy
     Route: 048
     Dates: start: 20231101, end: 20231102
  2. TRAMADOL [Suspect]
     Active Substance: TRAMADOL
     Indication: Back pain
  3. HYDROCODONE [Suspect]
     Active Substance: HYDROCODONE
     Indication: Back pain
  4. ENTOCORT EC [Concomitant]
     Active Substance: BUDESONIDE
     Dosage: 3 TABLETS A DAY
  5. PROTONIX [Concomitant]
     Active Substance: PANTOPRAZOLE SODIUM
     Dosage: 40 MG, 2X/DAY
  6. LIPITOR [Concomitant]
     Active Substance: ATORVASTATIN CALCIUM
     Dosage: 20 MG DAILY

REACTIONS (3)
  - Abnormal loss of weight [Recovering/Resolving]
  - Hypophagia [Recovered/Resolved]
  - Nausea [Recovering/Resolving]

NARRATIVE: CASE EVENT DATE: 20231101
